FAERS Safety Report 5803865-1 (Version None)
Quarter: 2008Q3

REPORT INFORMATION
  Report Type: 
  Country: None (occurrence: None)
  Receive Date: 20080707
  Receipt Date: 20080624
  Transmission Date: 20090109
  Serious: Yes (Other)
  Sender: FDA-Public Use
  Company Number: 2008S1011508

PATIENT
  Age: 71 Year
  Sex: Male

DRUGS (2)
  1. WARFARIN SODIUM [Suspect]
     Indication: ANTICOAGULANT THERAPY
  2. HEPARIN LMW (DALTEPARIN SODIUM) [Suspect]
     Indication: ANTICOAGULANT THERAPY

REACTIONS (3)
  - CARDIAC PSEUDOANEURYSM [None]
  - CAROTID ARTERY ANEURYSM [None]
  - HAEMATOMA [None]
